FAERS Safety Report 7905146-9 (Version None)
Quarter: 2011Q4

REPORT INFORMATION
  Report Type: 
  Country: None (occurrence: None)
  Receive Date: 20111109
  Receipt Date: 20090602
  Transmission Date: 20120403
  Serious: Yes (Hospitalization, Other)
  Sender: FDA-Public Use
  Company Number: CA-AMGEN-QUU343937

PATIENT
  Age: 47 Year
  Sex: Male
  Weight: 77.2 kg

DRUGS (2)
  1. ENBREL [Suspect]
     Indication: PSORIASIS
     Dosage: UNK UNK, 2 TIMES/WK
     Dates: start: 20090211, end: 20090216
  2. CORTICOSTEROID NOS [Concomitant]
     Dosage: UNK UNK, UNK
     Route: 061

REACTIONS (18)
  - CHILLS [None]
  - COUGH [None]
  - DRUG ERUPTION [None]
  - MYCOSIS FUNGOIDES [None]
  - BACK PAIN [None]
  - MALAISE [None]
  - SERUM SICKNESS [None]
  - VOMITING [None]
  - RASH MACULAR [None]
  - DIARRHOEA [None]
  - ABDOMINAL PAIN [None]
  - RIB FRACTURE [None]
  - AGITATION [None]
  - HYPERSENSITIVITY [None]
  - NAUSEA [None]
  - HYPERTENSION [None]
  - LICHENOID KERATOSIS [None]
  - COLD SWEAT [None]
